FAERS Safety Report 6793741-2 (Version None)
Quarter: 2010Q2

REPORT INFORMATION
  Report Type: 
  Country: None (occurrence: None)
  Receive Date: 20100624
  Receipt Date: 20090130
  Transmission Date: 20101027
  Serious: No
  Sender: FDA-Public Use
  Company Number: US-PFIZER INC-2009163915

PATIENT
  Sex: Female
  Weight: 65 kg

DRUGS (2)
  1. DEPO-PROVERA [Suspect]
     Indication: CONTRACEPTION
     Dosage: UNK
     Dates: start: 20071001
  2. MINOCYCLINE HCL [Concomitant]

REACTIONS (1)
  - INJECTION SITE HAEMORRHAGE [None]
